FAERS Safety Report 23132831 (Version 9)
Quarter: 2024Q2

REPORT INFORMATION
  Report Type: Report from Study
  Country: ES (occurrence: ES)
  Receive Date: 20231101
  Receipt Date: 20240429
  Transmission Date: 20240716
  Serious: Yes (Hospitalization, Other)
  Sender: FDA-Public Use
  Company Number: ES-CELLTRION HEALTHCARE HUNGARY KFT-2023ES020390

PATIENT
  Age: 71 Year
  Sex: Female
  Weight: 70 kg

DRUGS (29)
  1. LENALIDOMIDE [Suspect]
     Active Substance: LENALIDOMIDE
     Indication: Follicular lymphoma
     Dosage: 20 MG, QD, DAYS 1-21
     Route: 048
     Dates: start: 20230720, end: 20230924
  2. LENALIDOMIDE [Suspect]
     Active Substance: LENALIDOMIDE
     Dosage: 20 MG, QD, DAYS
     Route: 048
     Dates: start: 20230720, end: 20231002
  3. LENALIDOMIDE [Suspect]
     Active Substance: LENALIDOMIDE
     Dosage: LAST DOSE OF LENALIDOMIDE PRIOR TO THE SAE
     Route: 048
     Dates: start: 20230923
  4. LENALIDOMIDE [Suspect]
     Active Substance: LENALIDOMIDE
     Dosage: LAST DOSES OF INCMOR00208/PLACEBO, LENALIDOMIDE AND RITUXIMAB, PRIOR TO THE SAE WAS TAKEN ON 02OCT20
     Dates: start: 20231002
  5. LENALIDOMIDE [Suspect]
     Active Substance: LENALIDOMIDE
     Dosage: LAST DOSE OF LENALIDOMIDE PRIOR TO THE SAE OF FEVER WAS TAKEN ON 12NOV2023
     Route: 048
     Dates: start: 20231109, end: 20231112
  6. LENALIDOMIDE [Suspect]
     Active Substance: LENALIDOMIDE
     Dosage: THE LAST DOSES OF INCMOR00208/PLACEBO, LENALIDOMIDE, AND RITUXIMAB PRIOR TO THE SAE OF LUNG INFECTIO
     Route: 048
     Dates: start: 20231116, end: 20231122
  7. LENALIDOMIDE [Suspect]
     Active Substance: LENALIDOMIDE
     Route: 048
     Dates: start: 20231207, end: 20231219
  8. LENALIDOMIDE [Suspect]
     Active Substance: LENALIDOMIDE
     Dosage: 20 MG QD ON DAYS 1 TO 21 FOR 12 CYCLES
     Route: 048
  9. LENALIDOMIDE [Suspect]
     Active Substance: LENALIDOMIDE
     Dosage: LAST DOSE PRIOR TO THE SERIOUS ADVERSE EVENT
     Route: 048
  10. LENALIDOMIDE [Suspect]
     Active Substance: LENALIDOMIDE
     Dosage: THE LAST DOSES OF INCMOR00208/PLACEBO, RITUXIMAB AND LENALIDOMIDE WERE TAKEN ON AN UNSPECIFIED DATE.
  11. RITUXIMAB [Suspect]
     Active Substance: RITUXIMAB
     Indication: Follicular lymphoma
     Dosage: 694 MG, CYCLIC, (375 MH/SQ.M) FOR 5 CYCLES
     Route: 042
     Dates: start: 20230720
  12. RITUXIMAB [Suspect]
     Active Substance: RITUXIMAB
     Dosage: LAST DOSE OF RITUXIMAB PRIOR TO THE SERIOUS ADVERSE EVENT (SAE)
     Dates: start: 20230915
  13. RITUXIMAB [Suspect]
     Active Substance: RITUXIMAB
     Dosage: LAST DOSES OF INCMOR00208/PLACEBO, LENALIDOMIDE AND RITUXIMAB, PRIOR TO THE SAE WAS TAKEN ON 02OCT20
     Route: 042
     Dates: start: 20231002
  14. RITUXIMAB [Suspect]
     Active Substance: RITUXIMAB
     Dosage: 690 MG (LAST DOSE PRIOR TO THE SERIOUS ADVERSE EVENT)
     Route: 042
     Dates: end: 20231002
  15. RITUXIMAB [Suspect]
     Active Substance: RITUXIMAB
     Dosage: INCMOR00208/PLACEBO AND RITUXIMAB PRIOR TO THE SAE OF FEVER WERE TAKEN ON 09NOV2023
     Route: 042
     Dates: start: 20231109, end: 20231113
  16. RITUXIMAB [Suspect]
     Active Substance: RITUXIMAB
     Dosage: 690 MG (LAST DOSE PRIOR TO THE SERIOUS ADVERSE EVENT)
     Route: 042
  17. RITUXIMAB [Suspect]
     Active Substance: RITUXIMAB
     Dosage: 375 MG/M2, 5 CYCLES
     Route: 042
  18. RITUXIMAB [Suspect]
     Active Substance: RITUXIMAB
     Dosage: THE LAST DOSES OF INCMOR00208/PLACEBO, RITUXIMAB AND LENALIDOMIDE WERE TAKEN ON AN UNSPECIFIED DATE.
  19. TAFASITAMAB [Suspect]
     Active Substance: TAFASITAMAB
     Indication: Follicular lymphoma
     Dosage: 974 MG
     Route: 042
     Dates: start: 20230720
  20. TAFASITAMAB [Suspect]
     Active Substance: TAFASITAMAB
     Dosage: LAST DOSE OF INCMOR00208/PLACEBO PRIOR TO THE SAE
     Dates: start: 20230922
  21. TAFASITAMAB [Suspect]
     Active Substance: TAFASITAMAB
     Dosage: UNK
     Dates: end: 20230928
  22. TAFASITAMAB [Suspect]
     Active Substance: TAFASITAMAB
     Dosage: LAST DOSES OF INCMOR00208/PLACEBO, LENALIDOMIDE AND RITUXIMAB, PRIOR TO THE SAE WAS TAKEN ON 02OCT20
     Route: 042
     Dates: start: 20231002
  23. TAFASITAMAB [Suspect]
     Active Substance: TAFASITAMAB
     Dosage: UNK
     Route: 042
     Dates: end: 20231002
  24. TAFASITAMAB [Suspect]
     Active Substance: TAFASITAMAB
     Dosage: UNK
     Dates: start: 20231011
  25. TAFASITAMAB [Suspect]
     Active Substance: TAFASITAMAB
     Dosage: LAST DOSE PRIOR TO THE SERIOUS ADVERSE EVENT
     Route: 042
     Dates: start: 20231109, end: 20231113
  26. TAFASITAMAB [Suspect]
     Active Substance: TAFASITAMAB
     Dosage: UNK
     Route: 042
     Dates: start: 20231122
  27. TAFASITAMAB [Suspect]
     Active Substance: TAFASITAMAB
     Dosage: UNK
     Route: 042
     Dates: start: 20231207
  28. TAFASITAMAB [Suspect]
     Active Substance: TAFASITAMAB
     Dosage: THE LAST DOSES OF INCMOR00208/PLACEBO, RITUXIMAB AND LENALIDOMIDE WERE TAKEN ON AN UNSPECIFIED DATE.
  29. LEVOFLOXACIN [Concomitant]
     Active Substance: LEVOFLOXACIN
     Indication: Product used for unknown indication
     Dates: start: 20230917, end: 20230924

REACTIONS (2)
  - COVID-19 pneumonia [Recovered/Resolved]
  - Pneumonia [Recovered/Resolved]

NARRATIVE: CASE EVENT DATE: 20230924
